FAERS Safety Report 5683891-6 (Version None)
Quarter: 2008Q1

REPORT INFORMATION
  Report Type: 
  Country: None (occurrence: None)
  Receive Date: 20080327
  Receipt Date: 20080327
  Transmission Date: 20080703
  Serious: Yes (Other)
  Sender: FDA-Public Use
  Company Number: None

PATIENT
  Age: 3 Year
  Sex: Male

DRUGS (1)
  1. CYTARABINE [Suspect]
     Indication: ACUTE MYELOID LEUKAEMIA
     Dosage: 650 MG BID IV DRIP
     Route: 041
     Dates: start: 20080312, end: 20080316

REACTIONS (2)
  - INFUSION RELATED REACTION [None]
  - PYREXIA [None]
